FAERS Safety Report 14267128 (Version 1)
Quarter: 2017Q4

REPORT INFORMATION
  Report Type: Spontaneous
  Country: US (occurrence: US)
  Receive Date: 20171208
  Receipt Date: 20171208
  Transmission Date: 20180321
  Serious: Yes (Other)
  Sender: FDA-Public Use
  Company Number: None

PATIENT
  Age: 65 Year
  Sex: Female
  Weight: 63 kg

DRUGS (4)
  1. IBUPROFEN. [Concomitant]
     Active Substance: IBUPROFEN
  2. EX-LAX MAXIMUM STRENGTH STIMULANT LAXATIVE [Suspect]
     Active Substance: SENNOSIDES
     Indication: CONSTIPATION
     Dosage: ?          QUANTITY:2 TABLET(S);?
     Route: 048
     Dates: start: 20171206, end: 20171207
  3. CLONAZEPAM. [Concomitant]
     Active Substance: CLONAZEPAM
  4. GINGER. [Concomitant]
     Active Substance: GINGER

REACTIONS (1)
  - Haemorrhoids [None]

NARRATIVE: CASE EVENT DATE: 20171207
